FAERS Safety Report 25771663 (Version 1)
Quarter: 2025Q3

REPORT INFORMATION
  Report Type: Spontaneous
  Country: US (occurrence: US)
  Receive Date: 20250908
  Receipt Date: 20250908
  Transmission Date: 20251021
  Serious: No
  Sender: DOMPE FARMACEUTICI
  Company Number: US-FARMAPROD-202505-1543

PATIENT
  Age: 72 Year
  Sex: Female

DRUGS (5)
  1. OXERVATE [Suspect]
     Active Substance: CENEGERMIN-BKBJ
     Indication: Neurotrophic keratopathy
     Route: 047
     Dates: start: 20250424
  2. TAFLUPROST [Concomitant]
     Active Substance: TAFLUPROST
  3. TIMOLOL [Concomitant]
     Active Substance: TIMOLOL
  4. LOSARTAN POTASSIUM [Concomitant]
     Active Substance: LOSARTAN POTASSIUM
  5. LEVOTHYROXINE SODIUM [Concomitant]
     Active Substance: LEVOTHYROXINE SODIUM

REACTIONS (3)
  - Eye pain [Unknown]
  - Eye irritation [Unknown]
  - Photophobia [Unknown]

NARRATIVE: CASE EVENT DATE: 20250504
